FAERS Safety Report 4773088-6 (Version None)
Quarter: 2005Q3

REPORT INFORMATION
  Report Type: 
  Country: None (occurrence: None)
  Receive Date: 20050916
  Receipt Date: 20050909
  Transmission Date: 20060218
  Serious: Yes (Death, Hospitalization, Other)
  Sender: FDA-Public Use
  Company Number: KII-2005-0018592

PATIENT
  Age: 29 Year
  Sex: Female

DRUGS (1)
  1. OXYCONTIN [Suspect]
     Dosage: ORAL
     Route: 048

REACTIONS (12)
  - APNOEA [None]
  - HYPOTENSION [None]
  - HYPOTONIA [None]
  - INTERNATIONAL NORMALISED RATIO INCREASED [None]
  - LIVER FUNCTION TEST ABNORMAL [None]
  - MULTI-ORGAN FAILURE [None]
  - OVERDOSE [None]
  - PULSE ABSENT [None]
  - PUPIL FIXED [None]
  - RENAL FAILURE [None]
  - RESUSCITATION [None]
  - TROPONIN INCREASED [None]
